FAERS Safety Report 24591556 (Version 3)
Quarter: 2024Q4

REPORT INFORMATION
  Report Type: Spontaneous
  Country: ES (occurrence: ES)
  Receive Date: 20241108
  Receipt Date: 20241121
  Transmission Date: 20250114
  Serious: Yes (Life-Threatening, Hospitalization, Other)
  Sender: SANOFI AVENTIS
  Company Number: ES-MLMSERVICE-20241024-PI237938-00033-1

PATIENT
  Age: 61 Year
  Sex: Male

DRUGS (8)
  1. ASPIRIN [Suspect]
     Active Substance: ASPIRIN
     Dosage: UNK
  2. CLOPIDOGREL BISULFATE [Suspect]
     Active Substance: CLOPIDOGREL BISULFATE
     Indication: Coronary revascularisation
     Dosage: 600 MG LOADING DOSE
  3. CLOPIDOGREL BISULFATE [Suspect]
     Active Substance: CLOPIDOGREL BISULFATE
     Dosage: 75 MG, QD
  4. SINTROM [Suspect]
     Active Substance: ACENOCOUMAROL
     Dosage: UNK
  5. UNSPECIFIED INGREDIENT [Suspect]
     Active Substance: UNSPECIFIED INGREDIENT
     Dosage: UNK
  6. UNSPECIFIED INGREDIENT [Suspect]
     Active Substance: UNSPECIFIED INGREDIENT
     Dosage: UNK
  7. MILRINONE [Concomitant]
     Active Substance: MILRINONE
     Dosage: UNK
  8. DOBUTAMINE [Concomitant]
     Active Substance: DOBUTAMINE HYDROCHLORIDE
     Dosage: UNK

REACTIONS (13)
  - Cardiac tamponade [Unknown]
  - Pericardial effusion [Unknown]
  - Pleural effusion [Unknown]
  - Atrial fibrillation [Unknown]
  - Superior vena cava syndrome [Recovered/Resolved]
  - Neck pain [Recovered/Resolved]
  - Headache [Recovered/Resolved]
  - Oedema peripheral [Recovered/Resolved]
  - Plethoric face [Recovered/Resolved]
  - Dyspnoea [Recovered/Resolved]
  - Palpitations [Recovered/Resolved]
  - Mass [Recovered/Resolved]
  - Haematoma [Recovered/Resolved]

NARRATIVE: CASE EVENT DATE: 20231101
